FAERS Safety Report 11256865 (Version 1)
Quarter: 2015Q3

REPORT INFORMATION
  Report Type: Spontaneous
  Country: US (occurrence: US)
  Receive Date: 20150709
  Receipt Date: 20150709
  Transmission Date: 20151125
  Serious: No
  Sender: FDA-Public Use
  Company Number: US-PURDUE-USA-2014-0119536

PATIENT
  Sex: Female

DRUGS (1)
  1. BUTRANS [Suspect]
     Active Substance: BUPRENORPHINE
     Indication: PAIN
     Dosage: 20 MCG/HR, WEEKLY
     Route: 062
     Dates: start: 20141028, end: 20141130

REACTIONS (9)
  - Application site vesicles [Recovered/Resolved]
  - Application site reaction [Unknown]
  - Application site burn [Unknown]
  - Application site pruritus [Recovered/Resolved]
  - Application site exfoliation [Unknown]
  - Application site dryness [Unknown]
  - Application site bruise [Unknown]
  - Product adhesion issue [Recovered/Resolved]
  - Application site erythema [Unknown]
